FAERS Safety Report 5198720-7 (Version None)
Quarter: 2007Q1

REPORT INFORMATION
  Report Type: 
  Country: None (occurrence: None)
  Receive Date: 20070104
  Receipt Date: 20070102
  Transmission Date: 20070707
  Serious: Yes (Disabling)
  Sender: FDA-Public Use
  Company Number: US-GLAXOSMITHKLINE-A0631453A

PATIENT
  Age: 33 Year
  Sex: Female
  Weight: 62.7 kg

DRUGS (2)
  1. LAMICTAL [Suspect]
     Indication: BIPOLAR DISORDER
     Dosage: 50MG PER DAY
     Route: 048
     Dates: start: 20061122, end: 20061201
  2. NO CONCURRENT MEDICATION [Concomitant]

REACTIONS (6)
  - ARTHRALGIA [None]
  - COORDINATION ABNORMAL [None]
  - GAIT DISTURBANCE [None]
  - JOINT STIFFNESS [None]
  - MYALGIA [None]
  - PAIN [None]
